FAERS Safety Report 8535338-X (Version None)
Quarter: 2012Q3

REPORT INFORMATION
  Report Type: 
  Country: None (occurrence: None)
  Receive Date: 20120725
  Receipt Date: 20120717
  Transmission Date: 20120928
  Serious: No
  Sender: FDA-Public Use
  Company Number: US-BIOGENIDEC-2012BI008852

PATIENT
  Age: 55 Year
  Sex: Male

DRUGS (2)
  1. TYSABRI [Suspect]
     Indication: MULTIPLE SCLEROSIS
     Route: 042
     Dates: start: 20120308
  2. AVONEX [Concomitant]
     Indication: MULTIPLE SCLEROSIS
     Route: 030
     Dates: start: 20070309

REACTIONS (6)
  - MUSCULOSKELETAL STIFFNESS [None]
  - DIZZINESS [None]
  - HEADACHE [None]
  - FATIGUE [None]
  - BALANCE DISORDER [None]
  - MULTIPLE SCLEROSIS [None]
